FAERS Safety Report 14734160 (Version 1)
Quarter: 2018Q2

REPORT INFORMATION
  Report Type: Spontaneous
  Country: US (occurrence: US)
  Receive Date: 20180409
  Receipt Date: 20180409
  Transmission Date: 20180711
  Serious: Yes (Other)
  Sender: FDA-Public Use
  Company Number: US-ALLERGAN-1815742US

PATIENT
  Age: 62 Year
  Sex: Female

DRUGS (1)
  1. ARMOUR THYROID [Suspect]
     Active Substance: THYROID, PORCINE
     Indication: HYPOTHYROIDISM
     Dosage: 60MG EVERY MORNING
     Route: 048
     Dates: start: 201803

REACTIONS (7)
  - Drug administration error [Unknown]
  - Drug ineffective [Unknown]
  - Loss of personal independence in daily activities [Recovering/Resolving]
  - Neoplasm malignant [Not Recovered/Not Resolved]
  - Inappropriate schedule of drug administration [Unknown]
  - Memory impairment [Recovering/Resolving]
  - Feeling abnormal [Recovering/Resolving]

NARRATIVE: CASE EVENT DATE: 201803
